FAERS Safety Report 9190641 (Version 1)
Quarter: 2013Q1

REPORT INFORMATION
  Report Type: Spontaneous
  Country: GB (occurrence: None)
  Receive Date: 20130322
  Receipt Date: 20130322
  Transmission Date: 20140127
  Serious: Yes (Life-Threatening, Disabling)
  Sender: FDA-Public Use
  Company Number: AUR-APL-2013-02394

PATIENT
  Age: 62 Year
  Sex: Female
  Weight: 73.9 kg

DRUGS (15)
  1. LISINOPRIL (LISINOPRIL) [Suspect]
     Indication: PRODUCT USED FOR UNKNOWN INDICATION
     Dates: start: 20121113
  2. ADCAL (CALCIUM CARBONATE) [Concomitant]
  3. ALENDRONIC ACID (ALENDRONIC ACID) [Concomitant]
  4. ATORVASTATIN (ATORVASTATIN) [Concomitant]
  5. AZATHIOPRINE (AZATHIOPRINE) [Concomitant]
  6. BUCCASTEM 9PROCHLORPERAZINE MALEATE) [Concomitant]
  7. CODEINE PHOSPHATE (CODEINE PHOSPHATE) [Concomitant]
  8. FERROUS FUMARATE (FERROUS FUMARATE) [Concomitant]
  9. FLUCLOXACILLIN (FLUCLOXACILLIN) [Concomitant]
  10. FUROSEMIDE (FUROSEMIDE) [Concomitant]
  11. HIRUDOID (HEPARINOID) [Concomitant]
  12. LANSOPRAZOLE (LANSOPRAZOLE) [Concomitant]
  13. NEORAL (CICLOSPORIN) [Concomitant]
  14. PHENOXYMETHYLPENICILLIN (PHENOXYMETHYLPENICILLIN) [Concomitant]
  15. PREDNISOLONE (PREDNISOLONE) [Concomitant]

REACTIONS (2)
  - Angioedema [None]
  - Hypersensitivity [None]
